FAERS Safety Report 7580940-5 (Version None)
Quarter: 2011Q2

REPORT INFORMATION
  Report Type: 
  Country: None (occurrence: None)
  Receive Date: 20110629
  Receipt Date: 20110622
  Transmission Date: 20111010
  Serious: Yes (Other)
  Sender: FDA-Public Use
  Company Number: US-SANOFI-AVENTIS-2011SA039831

PATIENT
  Age: 50 Year
  Sex: Male

DRUGS (2)
  1. NOVOLIN R [Concomitant]
  2. LANTUS [Suspect]
     Indication: TYPE 1 DIABETES MELLITUS
     Dosage: DOSE:31 UNIT(S)
     Route: 058
     Dates: start: 20070101

REACTIONS (3)
  - HEARING IMPAIRED [None]
  - THROMBOSIS [None]
  - BLOOD GLUCOSE INCREASED [None]
